FAERS Safety Report 18583086 (Version 1)
Quarter: 2020Q4

REPORT INFORMATION
  Report Type: Spontaneous
  Country: CN (occurrence: CN)
  Receive Date: 20201206
  Receipt Date: 20201206
  Transmission Date: 20210114
  Serious: Yes (Hospitalization)
  Sender: FDA-Public Use
  Company Number: CN-NOVOPROD-770670

PATIENT
  Age: 58 Year
  Sex: Female
  Weight: 52 kg

DRUGS (1)
  1. LEVEMIR [Suspect]
     Active Substance: INSULIN DETEMIR
     Indication: BLOOD GLUCOSE ABNORMAL
     Dosage: 15 IU, QD
     Route: 030
     Dates: start: 20201030, end: 20201101

REACTIONS (2)
  - Hyperhidrosis [Recovering/Resolving]
  - Incorrect route of product administration [Recovered/Resolved]

NARRATIVE: CASE EVENT DATE: 20201030
